FAERS Safety Report 10548032 (Version 2)
Quarter: 2015Q2

REPORT INFORMATION
  Report Type: Spontaneous
  Country: US (occurrence: US)
  Receive Date: 20141028
  Receipt Date: 20150421
  Transmission Date: 20150821
  Serious: No
  Sender: FDA-Public Use
  Company Number: US-LEO PHARMA-229991

PATIENT
  Age: 56 Year
  Sex: Male

DRUGS (1)
  1. DAIVOBET [Suspect]
     Active Substance: BETAMETHASONE DIPROPIONATE\CALCIPOTRIENE
     Indication: PSORIASIS
     Route: 061
     Dates: start: 20140926, end: 20141002

REACTIONS (7)
  - Burning sensation [Not Recovered/Not Resolved]
  - Skin erosion [Unknown]
  - Psoriasis [Unknown]
  - Scab [Unknown]
  - Erythema [Not Recovered/Not Resolved]
  - Incorrect drug administration duration [Unknown]
  - Skin warm [Unknown]

NARRATIVE: CASE EVENT DATE: 20140926
